FAERS Safety Report 9517761 (Version 1)
Quarter: 2013Q3

REPORT INFORMATION
  Report Type: Spontaneous
  Country: US (occurrence: US)
  Receive Date: 20130912
  Receipt Date: 20130912
  Transmission Date: 20140515
  Serious: No
  Sender: FDA-Public Use
  Company Number: US-BIOGENIDEC-2013BI085554

PATIENT
  Sex: 0

DRUGS (1)
  1. TYSABRI [Suspect]
     Indication: CROHN^S DISEASE
     Route: 042

REACTIONS (12)
  - Mouth ulceration [Unknown]
  - Pain [Unknown]
  - Aphagia [Unknown]
  - Fluid intake reduced [Unknown]
  - Depressed mood [Unknown]
  - Painful respiration [Unknown]
  - Oral mucosal blistering [Unknown]
  - Chapped lips [Unknown]
  - Cheilitis [Unknown]
  - Stress [Unknown]
  - Insomnia [Unknown]
  - Oral pain [Unknown]
